FAERS Safety Report 5205817-1 (Version None)
Quarter: 2007Q1

REPORT INFORMATION
  Report Type: 
  Country: None (occurrence: None)
  Receive Date: 20070111
  Receipt Date: 20070108
  Transmission Date: 20070707
  Serious: Yes (Life-Threatening)
  Sender: FDA-Public Use
  Company Number: AU-ROCHE-477446

PATIENT
  Age: 16 Year
  Sex: Male
  Weight: 73 kg

DRUGS (1)
  1. ROACCUTANE [Suspect]
     Indication: ACNE
     Route: 048
     Dates: start: 20010701, end: 20020401

REACTIONS (15)
  - AGITATION [None]
  - AMNESIA [None]
  - ANHEDONIA [None]
  - ANXIETY [None]
  - BACK PAIN [None]
  - BONE DISORDER [None]
  - CONFUSIONAL STATE [None]
  - DEPRESSED MOOD [None]
  - DISTURBANCE IN ATTENTION [None]
  - FATIGUE [None]
  - FEELING ABNORMAL [None]
  - MYALGIA [None]
  - RECTAL HAEMORRHAGE [None]
  - STRESS [None]
  - SUICIDAL IDEATION [None]
